FAERS Safety Report 8213634-3 (Version None)
Quarter: 2012Q1

REPORT INFORMATION
  Report Type: 
  Country: None (occurrence: None)
  Receive Date: 20120315
  Receipt Date: 20120309
  Transmission Date: 20120608
  Serious: Yes (Hospitalization, Other)
  Sender: FDA-Public Use
  Company Number: US-ASTRAZENECA-2012SE09677

PATIENT
  Age: 55 Year
  Sex: Male

DRUGS (10)
  1. ASPIRIN [Concomitant]
     Dosage: LOW DOSE
  2. ADVAIR DISKUS 100/50 [Concomitant]
     Indication: ASTHMA
  3. LIPITOR [Concomitant]
  4. PLAVIX [Concomitant]
     Indication: ANTICOAGULANT THERAPY
     Dates: start: 20120201
  5. BRILINTA [Suspect]
     Route: 048
     Dates: start: 20120129, end: 20120202
  6. LISINOPRIL [Concomitant]
     Dates: start: 20120129
  7. CARVEDILOL [Suspect]
     Dates: start: 20120201
  8. BETA-BLOCKER MEDICATION [Concomitant]
  9. ALBUTEROL [Concomitant]
     Indication: ASTHMA
     Dosage: AS NEEDED
  10. CARVEDILOL [Suspect]
     Dates: start: 20120129, end: 20120202

REACTIONS (4)
  - BRADYCARDIA [None]
  - ATRIOVENTRICULAR BLOCK FIRST DEGREE [None]
  - ELECTROCARDIOGRAM PR PROLONGATION [None]
  - ATRIOVENTRICULAR DISSOCIATION [None]
